FAERS Safety Report 5075236-X (Version None)
Quarter: 2006Q3

REPORT INFORMATION
  Report Type: 
  Country: None (occurrence: None)
  Receive Date: 20060809
  Receipt Date: 20060728
  Transmission Date: 20061208
  Serious: Yes (Other)
  Sender: FDA-Public Use
  Company Number: PHBS2006BR11450

PATIENT
  Age: 49 Year
  Sex: Female
  Weight: 72.5 kg

DRUGS (1)
  1. CODATEN [Suspect]
     Indication: MUSCULOSKELETAL PAIN
     Dosage: UNK, Q12H
     Route: 048
     Dates: start: 20060720, end: 20060723

REACTIONS (10)
  - CONFUSIONAL STATE [None]
  - DRUG INEFFECTIVE [None]
  - FEELING COLD [None]
  - FEELING HOT [None]
  - HYPOTENSION [None]
  - NAUSEA [None]
  - SENSORY DISTURBANCE [None]
  - STOMACH DISCOMFORT [None]
  - TREMOR [None]
  - VOMITING [None]
